FAERS Safety Report 20382959 (Version 4)
Quarter: 2022Q1

REPORT INFORMATION
  Report Type: Spontaneous
  Country: US (occurrence: None)
  Receive Date: 20220127
  Receipt Date: 20220322
  Transmission Date: 20220423
  Serious: Yes (Hospitalization)
  Sender: FDA-Public Use
  Company Number: US-FRESENIUS KABI-FK202200833

PATIENT
  Age: 72 Year
  Sex: Female
  Weight: 62 kg

DRUGS (46)
  1. FLUDARABINE [Suspect]
     Active Substance: FLUDARABINE PHOSPHATE
     Indication: Chronic lymphocytic leukaemia
     Route: 042
     Dates: start: 20210821, end: 20210823
  2. LISOCABTAGENE MARALEUCEL [Suspect]
     Active Substance: LISOCABTAGENE MARALEUCEL
     Indication: Chronic lymphocytic leukaemia
     Dosage: 100X10^6 CAR+TCELLS?JCAR017
     Route: 042
     Dates: start: 20210826, end: 20210826
  3. CYCLOPHOSPHAMIDE [Suspect]
     Active Substance: CYCLOPHOSPHAMIDE
     Indication: Chronic lymphocytic leukaemia
     Route: 042
     Dates: start: 20210821, end: 20210823
  4. IBRUTINIB [Suspect]
     Active Substance: IBRUTINIB
     Indication: Chronic lymphocytic leukaemia
     Route: 048
     Dates: start: 20210720, end: 20211029
  5. ALLOPURINOL [Concomitant]
     Active Substance: ALLOPURINOL
     Indication: Chronic lymphocytic leukaemia
     Dosage: ONGOING?NOT PROVIDED
     Route: 048
     Dates: start: 20210820
  6. LEVOFLOXACIN [Concomitant]
     Active Substance: LEVOFLOXACIN
     Indication: Prophylaxis
     Dosage: ONGOING?NOT PROVIDED
     Route: 048
     Dates: start: 20210829
  7. MAGNESIUM OXIDE [Concomitant]
     Active Substance: MAGNESIUM OXIDE
     Indication: Supplementation therapy
     Dosage: ONGOING?NOT PROVIDED
     Route: 048
     Dates: start: 20210904
  8. CALCIUM CITRATE/VITAMIN D NOS [Concomitant]
     Indication: Supplementation therapy
     Dosage: ONGOING?NOT PROVIDED
     Route: 048
     Dates: start: 20210905
  9. SODIUM CHLORIDE [Concomitant]
     Active Substance: SODIUM CHLORIDE
     Indication: Fluid replacement
     Dosage: ONGOING?NOT PROVIDED?SODIUM CHLORIDE 0.9 PERCENT
     Route: 042
     Dates: start: 20210905
  10. SODIUM CHLORIDE [Concomitant]
     Active Substance: SODIUM CHLORIDE
     Dosage: NOT PROVIDED
     Route: 042
     Dates: start: 20211114, end: 20211114
  11. ONDANSETRON [Concomitant]
     Active Substance: ONDANSETRON
     Indication: Nausea
     Dosage: ONGOING?NOT PROVIDED
     Route: 042
     Dates: start: 20210715
  12. ONDANSETRON [Concomitant]
     Active Substance: ONDANSETRON
     Indication: Vomiting
     Dosage: ONGOING?NOT PROVIDED
     Route: 048
     Dates: start: 20211017
  13. ONDANSETRON [Concomitant]
     Active Substance: ONDANSETRON
     Indication: Product used for unknown indication
     Dosage: ONGOING?NOT PROVIDED
     Route: 048
     Dates: start: 20211104
  14. ONDANSETRON [Concomitant]
     Active Substance: ONDANSETRON
     Dosage: NOT PROVIDED
     Route: 042
     Dates: start: 20211114, end: 20211114
  15. ONDANSETRON [Concomitant]
     Active Substance: ONDANSETRON
     Dosage: NOT PROVIDED?UNKNOWN
     Route: 042
     Dates: start: 20211128
  16. ACETAMINOPHEN [Concomitant]
     Active Substance: ACETAMINOPHEN
     Indication: Pain
     Dosage: ONGOING?NOT PROVIDED
     Route: 048
     Dates: start: 20210904
  17. ACETAMINOPHEN [Concomitant]
     Active Substance: ACETAMINOPHEN
     Indication: Pyrexia
     Dosage: ONGOING?NOT PROVIDED
     Route: 048
     Dates: start: 20211017
  18. ACETAMINOPHEN [Concomitant]
     Active Substance: ACETAMINOPHEN
     Indication: Premedication
     Dosage: NOT PROVIDED
     Route: 048
     Dates: start: 20211114, end: 20211114
  19. ACETAMINOPHEN [Concomitant]
     Active Substance: ACETAMINOPHEN
     Indication: Product used for unknown indication
  20. ESCITALOPRAM [Concomitant]
     Active Substance: ESCITALOPRAM OXALATE
     Indication: Product used for unknown indication
     Dosage: ONGOING?NOT PROVIDED
     Route: 048
     Dates: start: 20210904
  21. ACYCLOVIR [Concomitant]
     Active Substance: ACYCLOVIR
     Indication: Antiviral treatment
     Dosage: ONGOING?NOT PROVIDED
     Route: 048
     Dates: start: 20210927
  22. ACYCLOVIR [Concomitant]
     Active Substance: ACYCLOVIR
     Indication: Antiviral prophylaxis
  23. ACYCLOVIR [Concomitant]
     Active Substance: ACYCLOVIR
     Indication: Product used for unknown indication
  24. DAPSONE [Concomitant]
     Active Substance: DAPSONE
     Indication: Pancytopenia
     Dosage: ONGOING?NOT PROVIDED
     Route: 048
     Dates: start: 20210928
  25. CLONAZEPAM [Concomitant]
     Active Substance: CLONAZEPAM
     Indication: Insomnia
     Dosage: ONGOING?NOT PROVIDED
     Route: 048
     Dates: start: 20210928
  26. CALCIUM CARBONATE [Concomitant]
     Active Substance: CALCIUM CARBONATE
     Indication: Product used for unknown indication
     Dosage: ONGOING?NOT PROVIDED
     Route: 048
     Dates: start: 20211017
  27. POTASSIUM CHLORIDE [Concomitant]
     Active Substance: POTASSIUM CHLORIDE
     Indication: Product used for unknown indication
     Dosage: ONGOING?NOT PROVIDED
     Route: 048
     Dates: start: 20211019
  28. ERGOCALCIFEROL/CALCIUM CITRATE [Concomitant]
     Indication: Product used for unknown indication
     Dosage: ONGOING ?NOT PROVIDED
     Route: 048
     Dates: start: 20211019
  29. MORPHINE SULFATE [Concomitant]
     Active Substance: MORPHINE SULFATE
     Indication: Product used for unknown indication
     Dosage: ONGOING?NOT PROVIDED
     Route: 042
     Dates: start: 20211017
  30. MORPHINE SULFATE [Concomitant]
     Active Substance: MORPHINE SULFATE
     Dosage: NOT PROVIDED
     Route: 042
     Dates: start: 20211114, end: 20211114
  31. ENOXAPARIN SODIUM [Concomitant]
     Active Substance: ENOXAPARIN SODIUM
     Indication: Product used for unknown indication
     Route: 058
     Dates: start: 20211114, end: 20211114
  32. HEPARIN SODIUM [Concomitant]
     Active Substance: HEPARIN SODIUM
     Indication: Product used for unknown indication
     Dosage: NOT PROVIDED
     Route: 042
     Dates: start: 20211115, end: 20211115
  33. NYSTATIN [Concomitant]
     Active Substance: NYSTATIN
     Indication: Product used for unknown indication
     Dosage: ONGOING?NOT PROVIDED
     Route: 048
     Dates: start: 20211029
  34. NYSTATIN [Concomitant]
     Active Substance: NYSTATIN
     Indication: Oral candidiasis
     Dosage: NOT PROVIDED
     Route: 048
     Dates: start: 20211124, end: 20211214
  35. NYSTATIN [Concomitant]
     Active Substance: NYSTATIN
     Dosage: 500,000 UNITS?ONGOING
     Route: 048
     Dates: start: 20211211
  36. NYSTATIN [Concomitant]
     Active Substance: NYSTATIN
     Dosage: 500,000 UNITS?ONGOING
     Route: 065
     Dates: start: 20220102, end: 20220221
  37. NAPHAZOLINE HYDROCHLORIDE [Concomitant]
     Active Substance: NAPHAZOLINE HYDROCHLORIDE
     Indication: Product used for unknown indication
     Dosage: ONGOING
     Dates: start: 20211017
  38. SULFAMETHOXAZOLE\TRIMETHOPRIM [Concomitant]
     Active Substance: SULFAMETHOXAZOLE\TRIMETHOPRIM
     Indication: Product used for unknown indication
     Dosage: ONGOING
     Route: 048
     Dates: start: 20211017
  39. SULFAMETHOXAZOLE\TRIMETHOPRIM [Concomitant]
     Active Substance: SULFAMETHOXAZOLE\TRIMETHOPRIM
     Indication: Antibiotic prophylaxis
  40. ASPIRIN [Concomitant]
     Active Substance: ASPIRIN
     Indication: Product used for unknown indication
     Dosage: ONGOING
     Route: 048
     Dates: start: 20211017
  41. ZOLPIDEM [Concomitant]
     Active Substance: ZOLPIDEM TARTRATE
     Indication: Product used for unknown indication
     Dosage: ONGOING
     Route: 048
     Dates: start: 20211017
  42. ZOLPIDEM [Concomitant]
     Active Substance: ZOLPIDEM TARTRATE
     Indication: Insomnia
  43. PROPYLENE GLYCOL [Concomitant]
     Active Substance: PROPYLENE GLYCOL
     Indication: Dry eye
     Dosage: ONGOING?NOT PROVIDED?ARTIFICIAL TEARS
     Dates: start: 20210912
  44. PROMETHAZINE [Concomitant]
     Active Substance: PROMETHAZINE HYDROCHLORIDE
     Indication: Nausea
     Dosage: ONGOING
     Route: 048
     Dates: start: 20211104
  45. PROMETHAZINE [Concomitant]
     Active Substance: PROMETHAZINE HYDROCHLORIDE
     Indication: Vomiting
  46. PROMETHAZINE [Concomitant]
     Active Substance: PROMETHAZINE HYDROCHLORIDE
     Indication: Product used for unknown indication

REACTIONS (5)
  - Duodenitis [Recovering/Resolving]
  - Gastritis [Recovering/Resolving]
  - Cytomegalovirus infection reactivation [Not Recovered/Not Resolved]
  - Encephalitis [Recovering/Resolving]
  - Presyncope [Recovered/Resolved]
